FAERS Safety Report 17886519 (Version 2)
Quarter: 2020Q2

REPORT INFORMATION
  Report Type: Spontaneous
  Country: US (occurrence: US)
  Receive Date: 20200611
  Receipt Date: 20200615
  Transmission Date: 20200714
  Serious: No
  Sender: FDA-Public Use
  Company Number: US-PFIZER INC-2020222140

PATIENT
  Age: 6 Year
  Sex: Female
  Weight: 24.1 kg

DRUGS (6)
  1. CCNU [Suspect]
     Active Substance: LOMUSTINE
     Indication: ASTROCYTOMA
     Dosage: UNK
     Dates: start: 20140623
  2. VINCRISTINE SULFATE. [Suspect]
     Active Substance: VINCRISTINE SULFATE
     Dosage: UNK
     Dates: start: 20140623
  3. CARBOPLATIN. [Suspect]
     Active Substance: CARBOPLATIN
     Indication: ASTROCYTOMA
     Dosage: UNK
  4. THIOGUANINE [Suspect]
     Active Substance: THIOGUANINE
     Indication: ASTROCYTOMA
     Dosage: UNK
     Dates: start: 20140623
  5. PROCARBAZINE [Suspect]
     Active Substance: PROCARBAZINE
     Indication: ASTROCYTOMA
     Dosage: UNK
     Dates: start: 20140623
  6. VINCRISTINE SULFATE. [Suspect]
     Active Substance: VINCRISTINE SULFATE
     Indication: ASTROCYTOMA
     Dosage: UNK

REACTIONS (4)
  - Neoplasm progression [Unknown]
  - Product use issue [Unknown]
  - Product use in unapproved indication [Unknown]
  - Off label use [Unknown]

NARRATIVE: CASE EVENT DATE: 20140702
